FAERS Safety Report 11122077 (Version 2)
Quarter: 2015Q2

REPORT INFORMATION
  Report Type: Spontaneous
  Country: US (occurrence: US)
  Receive Date: 20150519
  Receipt Date: 20150526
  Transmission Date: 20150821
  Serious: Yes (Other)
  Sender: FDA-Public Use
  Company Number: US-009507513-1505USA007652

PATIENT

DRUGS (1)
  1. INTEGRILIN [Suspect]
     Active Substance: EPTIFIBATIDE
     Indication: THROMBOSIS
     Dosage: UNK

REACTIONS (2)
  - Cerebral haemorrhage [Unknown]
  - Off label use [Unknown]
